FAERS Safety Report 24145337 (Version 5)
Quarter: 2025Q1

REPORT INFORMATION
  Report Type: Spontaneous
  Country: FR (occurrence: FR)
  Receive Date: 20240729
  Receipt Date: 20250102
  Transmission Date: 20250409
  Serious: Yes (Congenital Anomaly)
  Sender: ORGANON
  Company Number: None

PATIENT
  Age: 33 Week
  Sex: Female
  Weight: 3.405 kg

DRUGS (13)
  1. SINGULAIR [Suspect]
     Active Substance: MONTELUKAST SODIUM
     Indication: Cystic fibrosis
     Route: 064
     Dates: start: 20240516
  2. IPRATROPIUM BROMIDE\FENOTEROL HYDROBROMIDE [Suspect]
     Active Substance: FENOTEROL HYDROBROMIDE\IPRATROPIUM BROMIDE
     Indication: Cystic fibrosis
     Dosage: 1 DOSAGE FORM, Q8H (1 UNIT, 8 HOURS )
     Dates: start: 20240516
  3. PULMOZYME [Suspect]
     Active Substance: DORNASE ALFA
     Indication: Cystic fibrosis
     Dosage: 1 DOSAGE FORM, QD (2500 U/2.5 ML) NEBULISER SOLUTION IN AMPOULE)
     Route: 064
     Dates: start: 20231029, end: 20240516
  4. CREON [Suspect]
     Active Substance: PANCRELIPASE AMYLASE\PANCRELIPASE LIPASE\PANCRELIPASE PROTEASE
     Indication: Cystic fibrosis
     Dosage: 15 DOSAGE FORM, QD (25000 U, GASTRO RESISTANT GRANULES IN CAPSULE)
     Route: 064
     Dates: start: 20231029
  5. ESOMEPRAZOLE [Suspect]
     Active Substance: ESOMEPRAZOLE
     Indication: Cystic fibrosis
     Dosage: 20 MILLIGRAM, QD
     Dates: start: 20231029
  6. ELEXACAFTOR\IVACAFTOR\TEZACAFTOR [Suspect]
     Active Substance: ELEXACAFTOR\IVACAFTOR\TEZACAFTOR
     Indication: Cystic fibrosis
     Dosage: KAFTRIO 75 MG/50 MG/100 MG, FILM-COATED TABLET
     Route: 064
     Dates: start: 20231029
  7. COLISTIMETHATE SODIUM [Suspect]
     Active Substance: COLISTIMETHATE SODIUM
     Indication: Cystic fibrosis
     Dosage: 2 MILLION INTERNATIONAL UNIT, EVERY 12 HOURS
     Route: 064
     Dates: start: 20231029
  8. INNOVAIR [Suspect]
     Active Substance: BECLOMETHASONE DIPROPIONATE\FORMOTEROL
     Indication: Cystic fibrosis
     Dosage: 2 DOSAGE FORM, Q12H (NEXTHALER 200 MICROGRAMS/6 MICROGRAMS PER INHALATION, INHALATION POWDER) (200 M
     Route: 064
     Dates: start: 20231029
  9. ALBUTEROL SULFATE [Suspect]
     Active Substance: ALBUTEROL SULFATE
     Indication: Cystic fibrosis
     Dosage: 1 DOSAGE FORM, PRN (AS NECESSARY)
     Route: 064
     Dates: start: 20231029, end: 20240510
  10. CETIRIZINE HYDROCHLORIDE [Suspect]
     Active Substance: CETIRIZINE HYDROCHLORIDE
     Indication: Cystic fibrosis
     Dosage: 20 MILLIGRAM, QD
     Route: 064
     Dates: start: 20231029
  11. SPIRIVA RESPIMAT [Suspect]
     Active Substance: TIOTROPIUM BROMIDE
     Indication: Cystic fibrosis
     Dosage: 2 DOSAGE FORM, QD
     Dates: start: 20231029
  12. KALYDECO [Suspect]
     Active Substance: IVACAFTOR
     Indication: Cystic fibrosis
     Dosage: ONE DOSE PER DAY (1 DOSAGE FORM, QD)
     Route: 064
     Dates: start: 20231029
  13. PANCRELIPASE [Suspect]
     Active Substance: PANCRELIPASE
     Indication: Cystic fibrosis
     Dosage: 3 DOSAGE FORM, Q8H (GASTRO-RESISTANT CAPSULE) 40000 U, TID
     Route: 064
     Dates: start: 20231029

REACTIONS (5)
  - Left-to-right cardiac shunt [Not Recovered/Not Resolved]
  - Amniotic fluid index increased [Recovered/Resolved]
  - Foetal macrosomia [Recovered/Resolved]
  - Maternal exposure during pregnancy [Recovered/Resolved]
  - Conjunctivitis [Not Recovered/Not Resolved]

NARRATIVE: CASE EVENT DATE: 20240101
